FAERS Safety Report 8385836-7 (Version None)
Quarter: 2012Q2

REPORT INFORMATION
  Report Type: 
  Country: None (occurrence: None)
  Receive Date: 20120525
  Receipt Date: 20120510
  Transmission Date: 20120825
  Serious: Yes (Other)
  Sender: FDA-Public Use
  Company Number: CH-JNJFOC-20120510051

PATIENT
  Age: 34 Year
  Sex: Female
  Weight: 85.6 kg

DRUGS (3)
  1. ESCITALOPRAM [Suspect]
     Indication: PRODUCT USED FOR UNKNOWN INDICATION
     Route: 065
     Dates: end: 20110413
  2. TOPAMAX [Suspect]
     Indication: EPILEPSY
     Route: 048
     Dates: end: 20110413
  3. XENICAL [Suspect]
     Indication: OBESITY
     Route: 065
     Dates: end: 20110413

REACTIONS (3)
  - MATERNAL EXPOSURE DURING PREGNANCY [None]
  - PREMATURE RUPTURE OF MEMBRANES [None]
  - PREMATURE LABOUR [None]
